FAERS Safety Report 22589876 (Version 1)
Quarter: 2023Q2

REPORT INFORMATION
  Report Type: Spontaneous
  Country: US (occurrence: US)
  Receive Date: 20230612
  Receipt Date: 20230612
  Transmission Date: 20230721
  Serious: No
  Sender: FDA-Public Use
  Company Number: US-SA-SAC20230609000757

PATIENT
  Age: 59 Year
  Sex: Female
  Weight: 51 kg

DRUGS (3)
  1. DUPIXENT [Suspect]
     Active Substance: DUPILUMAB
     Indication: Dermatitis atopic
     Dosage: 300 MG, QOW
     Route: 058
     Dates: start: 20230419
  2. TEPEZZA [Suspect]
     Active Substance: TEPROTUMUMAB-TRBW
  3. OTEZLA [Concomitant]
     Active Substance: APREMILAST

REACTIONS (1)
  - Ear discomfort [Unknown]

NARRATIVE: CASE EVENT DATE: 20230101
